FAERS Safety Report 5148386-7 (Version None)
Quarter: 2006Q4

REPORT INFORMATION
  Report Type: 
  Country: None (occurrence: None)
  Receive Date: 20061106
  Receipt Date: 20061024
  Transmission Date: 20070319
  Serious: Yes (Death, Other)
  Sender: FDA-Public Use
  Company Number: 2006130194

PATIENT
  Age: 77 Year
  Sex: Female

DRUGS (12)
  1. LYRICA [Suspect]
     Indication: PAIN
     Dosage: 25 MG (25 MG,1 IN 1 D), ORAL
     Route: 048
     Dates: start: 20050523
  2. MADOPAR                   (BENSERAZIDE HYDROCHLORIDE, LEVODOPA) [Concomitant]
  3. ................ [Concomitant]
  4. AMITRIPTYLINE HCL [Concomitant]
  5. FUROSEMIDE [Concomitant]
  6. ISOSORBIDE DINITRATE [Concomitant]
  7. NOZINAN (LEVOMEPROMAZINE) [Concomitant]
  8. CODEINE PHOSPHATE AND ACETAMINOPHEN [Concomitant]
  9. OXAZEPAM [Concomitant]
  10. LISINOPRIL [Concomitant]
  11. DURAGESIC-100 [Concomitant]
  12. NOVOMIX         (INSULIN ASPART) [Concomitant]

REACTIONS (5)
  - ANURIA [None]
  - CONFUSIONAL STATE [None]
  - OEDEMA [None]
  - POLYURIA [None]
  - TREMOR [None]
